FAERS Safety Report 13833539 (Version 1)
Quarter: 2017Q3

REPORT INFORMATION
  Report Type: Spontaneous
  Country: US (occurrence: US)
  Receive Date: 20170804
  Receipt Date: 20170804
  Transmission Date: 20171127
  Serious: Yes (Life-Threatening, Hospitalization)
  Sender: FDA-Public Use
  Company Number: US-LPDUSPRD-20171077

PATIENT
  Sex: Female

DRUGS (3)
  1. REGULAR INSULIN [Suspect]
     Active Substance: INSULIN NOS
     Dosage: 10 UNITS
     Route: 040
  2. SODIUM CHLORIDE INJECTION, USP (2802-25) [Suspect]
     Active Substance: SODIUM CHLORIDE
     Dosage: UNKNOWN
     Route: 040
  3. SODIUM ASCORBATE INJECTION (0892-01) [Suspect]
     Active Substance: SODIUM ASCORBATE
     Dosage: UNKNOWN
     Route: 065

REACTIONS (2)
  - Hypophosphataemia [Unknown]
  - Respiratory failure [Unknown]
